FAERS Safety Report 8333910-3 (Version None)
Quarter: 2012Q2

REPORT INFORMATION
  Report Type: 
  Country: None (occurrence: None)
  Receive Date: 20120503
  Receipt Date: 20120501
  Transmission Date: 20120825
  Serious: Yes (Other)
  Sender: FDA-Public Use
  Company Number: CA-ROCHE-1064983

PATIENT
  Age: 36 Year
  Sex: Female

DRUGS (6)
  1. FOLIC ACID [Concomitant]
     Route: 048
  2. TAMIFLU [Suspect]
     Indication: PRODUCT USED FOR UNKNOWN INDICATION
     Route: 048
  3. VITAMIN D [Concomitant]
     Route: 048
  4. LOVAZA [Concomitant]
     Route: 048
  5. CALCIUM [Concomitant]
     Route: 048
  6. MULTIPLE VITAMIN [Concomitant]
     Route: 048

REACTIONS (4)
  - HALLUCINATION [None]
  - SOMNOLENCE [None]
  - ALTERED VISUAL DEPTH PERCEPTION [None]
  - IMPAIRED DRIVING ABILITY [None]
